FAERS Safety Report 13189779 (Version 1)
Quarter: 2017Q1

REPORT INFORMATION
  Report Type: Spontaneous
  Country: GB (occurrence: GB)
  Receive Date: 20170206
  Receipt Date: 20170206
  Transmission Date: 20170428
  Serious: Yes (Hospitalization, Other)
  Sender: FDA-Public Use
  Company Number: GB-ELI_LILLY_AND_COMPANY-GB201702000800

PATIENT
  Age: 48 Year
  Sex: Female

DRUGS (1)
  1. HUMULIN M3 (MIXTURE 30/70) [Suspect]
     Active Substance: INSULIN HUMAN
     Indication: PRODUCT USED FOR UNKNOWN INDICATION
     Dosage: UNK, UNKNOWN
     Route: 065

REACTIONS (5)
  - Hyperglycaemia [Unknown]
  - Hypoglycaemia [Not Recovered/Not Resolved]
  - Hypoglycaemia [Unknown]
  - Diabetic ketoacidosis [Unknown]
  - Fracture [Unknown]
